FAERS Safety Report 5857279-9 (Version None)
Quarter: 2008Q3

REPORT INFORMATION
  Report Type: 
  Country: None (occurrence: None)
  Receive Date: 20080822
  Receipt Date: 20080815
  Transmission Date: 20090109
  Serious: Yes (Life-Threatening, Hospitalization)
  Sender: FDA-Public Use
  Company Number: 2008AP001758

PATIENT
  Age: 59 Year
  Sex: Male

DRUGS (1)
  1. CLOPIDOGREL [Suspect]
     Indication: CARDIAC DISORDER
     Dosage: 75 MG;QD;PO
     Route: 048
     Dates: start: 20070401, end: 20070901

REACTIONS (2)
  - CORONARY ARTERY BYPASS [None]
  - DRUG INEFFECTIVE [None]
